FAERS Safety Report 17818823 (Version 1)
Quarter: 2020Q2

REPORT INFORMATION
  Report Type: Spontaneous
  Country: US (occurrence: US)
  Receive Date: 20200522
  Receipt Date: 20200522
  Transmission Date: 20200714
  Serious: Yes (Other)
  Sender: FDA-Public Use
  Company Number: US-AMGEN-USASP2020080125

PATIENT
  Sex: Female

DRUGS (7)
  1. DIFLUPREDNATE [Concomitant]
     Active Substance: DIFLUPREDNATE
     Indication: UVEITIS
  2. DIFLUPREDNATE [Concomitant]
     Active Substance: DIFLUPREDNATE
     Indication: IRIDOCYCLITIS
     Dosage: DROPS Q1H OU (BOTH EYES)/ONE DROP DAILY OS (LEFT EYE) FOR 5 MONTHS (MAINTENANCE THERAPY)
     Route: 047
  3. TRIAMCINOLONE ACETONIDE. [Concomitant]
     Active Substance: TRIAMCINOLONE ACETONIDE
     Indication: UVEITIS
  4. TRIAMCINOLONE ACETONIDE. [Concomitant]
     Active Substance: TRIAMCINOLONE ACETONIDE
     Indication: MACULAR OEDEMA
  5. DIFLUPREDNATE [Concomitant]
     Active Substance: DIFLUPREDNATE
     Indication: MACULAR OEDEMA
  6. TALIMOGENE LAHERPAREPVEC [Suspect]
     Active Substance: TALIMOGENE LAHERPAREPVEC
     Indication: MALIGNANT MELANOMA STAGE III
     Dosage: UNK
     Route: 026
  7. TRIAMCINOLONE ACETONIDE. [Concomitant]
     Active Substance: TRIAMCINOLONE ACETONIDE
     Indication: IRIDOCYCLITIS
     Dosage: 2 MILLIGRAM OD (RIGHT EYE)/ 2 MG OS (LEFT EYE)
     Route: 047

REACTIONS (3)
  - Off label use [Unknown]
  - Uveitis [Recovering/Resolving]
  - Malignant melanoma [Unknown]
